FAERS Safety Report 17572177 (Version 1)
Quarter: 2020Q1

REPORT INFORMATION
  Report Type: Report from Study
  Country: FR (occurrence: FR)
  Receive Date: 20200323
  Receipt Date: 20200323
  Transmission Date: 20200409
  Serious: Yes (Other)
  Sender: FDA-Public Use
  Company Number: FR-RECORDATI RARE DISEASES-2081881

PATIENT
  Age: 59 Year
  Sex: Female
  Weight: 81.7 kg

DRUGS (5)
  1. METFORMIN [Concomitant]
     Active Substance: METFORMIN HYDROCHLORIDE
     Dates: start: 2009
  2. SIGNIFOR [Suspect]
     Active Substance: PASIREOTIDE DIASPARTATE
     Route: 058
     Dates: start: 20190903
  3. SIGNIFOR [Suspect]
     Active Substance: PASIREOTIDE DIASPARTATE
     Indication: PITUITARY-DEPENDENT CUSHING^S SYNDROME
     Route: 058
     Dates: start: 20181130
  4. SPIRONOLACTONE. [Concomitant]
     Active Substance: SPIRONOLACTONE
     Dates: start: 20151230
  5. NOVORAPID [Concomitant]
     Active Substance: INSULIN ASPART
     Dates: start: 2009

REACTIONS (8)
  - Vision blurred [Recovering/Resolving]
  - Malaise [Recovered/Resolved]
  - Tremor [Recovered/Resolved]
  - Thermal burn [Recovered/Resolved]
  - Condition aggravated [Recovered/Resolved]
  - Diarrhoea [Unknown]
  - Vertigo [Recovering/Resolving]
  - Type 2 diabetes mellitus [Recovered/Resolved]

NARRATIVE: CASE EVENT DATE: 201811
